FAERS Safety Report 11990790 (Version 1)
Quarter: 2016Q1

REPORT INFORMATION
  Report Type: Spontaneous
  Country: US (occurrence: US)
  Receive Date: 20160202
  Receipt Date: 20160202
  Transmission Date: 20160526
  Serious: No
  Sender: FDA-Public Use
  Company Number: GXBR2015US000937

PATIENT
  Age: 60 Year
  Sex: Male
  Weight: 65.76 kg

DRUGS (3)
  1. TOPROL XL [Concomitant]
     Active Substance: METOPROLOL SUCCINATE
     Indication: BLOOD PRESSURE MEASUREMENT
     Dosage: 25 MG, QD
     Dates: start: 201501
  2. TAMSULOISIN [Concomitant]
     Indication: PROSTATOMEGALY
     Dosage: 50 MG, QD
  3. OMEPRAZOLE DELAYED RELEASE [Suspect]
     Active Substance: OMEPRAZOLE
     Indication: ABDOMINAL DISCOMFORT
     Dosage: 20 MG, QD, 30 MINUTES PRIOR TO  BREAKFAST
     Route: 048
     Dates: start: 20150206

REACTIONS (1)
  - Drug ineffective [Not Recovered/Not Resolved]

NARRATIVE: CASE EVENT DATE: 20150206
